FAERS Safety Report 25828295 (Version 2)
Quarter: 2025Q4

REPORT INFORMATION
  Report Type: Report from Study
  Country: US (occurrence: US)
  Receive Date: 20250921
  Receipt Date: 20251018
  Transmission Date: 20260118
  Serious: Yes (Other)
  Sender: ABBVIE
  Company Number: US-ABBVIE-6467615

PATIENT
  Age: 45 Year
  Sex: Female

DRUGS (1)
  1. SKYRIZI [Suspect]
     Active Substance: RISANKIZUMAB-RZAA
     Indication: Crohn^s disease
     Dosage: 150 MILLIGRAM
     Route: 058
     Dates: start: 20250513

REACTIONS (6)
  - Drain site complication [Unknown]
  - Proctalgia [Not Recovered/Not Resolved]
  - Injection site papule [Recovered/Resolved]
  - Abdominal pain [Recovered/Resolved]
  - Intestinal mass [Not Recovered/Not Resolved]
  - Haemorrhoids [Unknown]

NARRATIVE: CASE EVENT DATE: 20250101
